FAERS Safety Report 6171577-3 (Version None)
Quarter: 2009Q2

REPORT INFORMATION
  Report Type: 
  Country: None (occurrence: None)
  Receive Date: 20090429
  Receipt Date: 20090428
  Transmission Date: 20091009
  Serious: Yes (Other)
  Sender: FDA-Public Use
  Company Number: JP-BAYER-200910949BYL

PATIENT
  Age: 55 Year
  Sex: Female
  Weight: 54 kg

DRUGS (19)
  1. FLUDARA [Suspect]
     Indication: LYMPHOMA
     Dosage: TOTAL DAILY DOSE: 60 MG  UNIT DOSE: 10 MG
     Route: 048
     Dates: start: 20081029, end: 20081102
  2. FLUDARA [Suspect]
     Dosage: UNIT DOSE: 10 MG
     Route: 048
     Dates: start: 20081202, end: 20081206
  3. FLUDARA [Suspect]
     Dosage: UNIT DOSE: 10 MG
     Route: 048
     Dates: start: 20090107, end: 20090111
  4. SAXIZON [Concomitant]
     Route: 065
  5. RITUXAN [Concomitant]
     Route: 041
  6. PRIMPERAN [Concomitant]
     Route: 065
  7. NASEA [Concomitant]
     Route: 042
  8. ADRIACIN [Concomitant]
     Route: 065
  9. ONCOVIN [Concomitant]
     Route: 042
  10. ENDOXAN [Concomitant]
     Route: 065
  11. LASIX [Concomitant]
     Route: 065
  12. SOLDEM 3A [Concomitant]
     Route: 041
  13. MEYLON [Concomitant]
     Route: 042
  14. PREDONINE [Concomitant]
     Route: 048
  15. ALLELOCK [Concomitant]
     Route: 048
  16. CALONAL [Concomitant]
     Route: 048
  17. GASTER D [Concomitant]
     Route: 048
  18. MUCOSTA [Concomitant]
     Route: 048
  19. MAGMITT [Concomitant]
     Route: 048

REACTIONS (3)
  - EOSINOPHIL COUNT INCREASED [None]
  - NEUTROPHIL COUNT DECREASED [None]
  - WHITE BLOOD CELL COUNT DECREASED [None]
